FAERS Safety Report 9151487 (Version 2)
Quarter: 2013Q1

REPORT INFORMATION
  Report Type: Spontaneous
  Country: JP (occurrence: JP)
  Receive Date: 20130308
  Receipt Date: 20130325
  Transmission Date: 20140127
  Serious: Yes (Hospitalization, Other)
  Sender: FDA-Public Use
  Company Number: PHHY2013JP022355

PATIENT
  Age: 67 Year
  Sex: Male

DRUGS (7)
  1. COMTAN [Suspect]
     Indication: PARKINSON^S DISEASE
     Dosage: UNK
     Route: 048
  2. MADOPAR [Concomitant]
     Dosage: UNK UKN, UNK
     Route: 048
  3. ARTANE [Concomitant]
     Dosage: UNK UKN, UNK
     Route: 048
  4. FP [Concomitant]
     Dosage: UNK UKN, UNK
     Route: 048
  5. PERMAX [Concomitant]
     Dosage: UNK UKN, UNK
     Route: 048
  6. EXCEGRAN [Concomitant]
     Dosage: UNK UKN, UNK
     Route: 048
  7. MAGLAX [Concomitant]
     Dosage: UNK UKN, UNK
     Route: 048

REACTIONS (5)
  - Megacolon [Unknown]
  - Volvulus [Unknown]
  - Weaning failure [Unknown]
  - Abdominal distension [Recovering/Resolving]
  - Dysphagia [Unknown]
